FAERS Safety Report 5803799-2 (Version None)
Quarter: 2008Q3

REPORT INFORMATION
  Report Type: 
  Country: None (occurrence: None)
  Receive Date: 20080708
  Receipt Date: 20080425
  Transmission Date: 20090109
  Serious: No
  Sender: FDA-Public Use
  Company Number: US-AMGEN-KDL276339

PATIENT
  Sex: Female

DRUGS (2)
  1. KINERET [Suspect]
     Indication: RHEUMATOID ARTHRITIS
     Route: 058
     Dates: start: 20080414
  2. METHOTREXATE [Concomitant]
     Route: 048
     Dates: start: 20071001

REACTIONS (2)
  - INJECTION SITE PAIN [None]
  - SOMNOLENCE [None]
